FAERS Safety Report 5331670-1 (Version None)
Quarter: 2007Q2

REPORT INFORMATION
  Report Type: 
  Country: None (occurrence: None)
  Receive Date: 20070516
  Receipt Date: 20070509
  Transmission Date: 20071010
  Serious: Yes (Other)
  Sender: FDA-Public Use
  Company Number: SPV1-2007-02628

PATIENT
  Age: 47 Year
  Sex: Female
  Weight: 54 kg

DRUGS (5)
  1. ADDERALL XR 10 [Suspect]
     Indication: ATTENTION DEFICIT/HYPERACTIVITY DISORDER
     Dosage: SEE IMAGE
     Dates: start: 20050101, end: 20050101
  2. ADDERALL XR 10 [Suspect]
     Indication: ATTENTION DEFICIT/HYPERACTIVITY DISORDER
     Dosage: SEE IMAGE
     Dates: start: 20070301, end: 20070503
  3. ADDERALL XR 10 [Suspect]
     Indication: ATTENTION DEFICIT/HYPERACTIVITY DISORDER
     Dosage: SEE IMAGE
     Dates: start: 20070508, end: 20070509
  4. STRATTERA [Suspect]
     Indication: ATTENTION DEFICIT/HYPERACTIVITY DISORDER
     Dosage: 1X/DAY: QD
     Dates: start: 20050101, end: 20050101
  5. SARAFEM (FLUOXETINE) [Concomitant]

REACTIONS (9)
  - BONE NEOPLASM [None]
  - DECREASED APPETITE [None]
  - DRY MOUTH [None]
  - DYSPHONIA [None]
  - HEADACHE [None]
  - HEPATIC NEOPLASM [None]
  - RENAL NEOPLASM [None]
  - TUMOUR INVASION [None]
  - WEIGHT DECREASED [None]
